FAERS Safety Report 5531203-0 (Version None)
Quarter: 2007Q4

REPORT INFORMATION
  Report Type: 
  Country: None (occurrence: None)
  Receive Date: 20071130
  Receipt Date: 20071123
  Transmission Date: 20080405
  Serious: Yes (Hospitalization)
  Sender: FDA-Public Use
  Company Number: US-ABBOTT-07P-163-0426233-00

PATIENT
  Sex: Female
  Weight: 74.91 kg

DRUGS (11)
  1. HUMIRA [Suspect]
     Indication: CROHN'S DISEASE
     Route: 058
     Dates: start: 20070101, end: 20071101
  2. HUMIRA [Suspect]
     Route: 058
     Dates: start: 20060101
  3. HUMIRA [Suspect]
     Route: 058
     Dates: end: 20070101
  4. CLINDAMYCIN HCL [Suspect]
     Indication: INFECTION
     Route: 048
     Dates: start: 20071101, end: 20071101
  5. CLINDAMYCIN HCL [Suspect]
     Indication: CELLULITIS
     Route: 042
  6. AMITRIPTYLINE HYDROCHLORIDE [Concomitant]
     Indication: DRUG USE FOR UNKNOWN INDICATION
  7. CITALOPRAM HYDROBROMIDE [Concomitant]
     Indication: DIARRHOEA
  8. PROPACET 100 [Concomitant]
     Indication: PAIN
  9. HYDROMORPHONE HYDROCHLORIDE [Concomitant]
     Indication: PAIN
     Route: 048
  10. ORAL CONTRACEPTIVE NOS [Concomitant]
     Indication: DRUG USE FOR UNKNOWN INDICATION
  11. ATENOLOL [Concomitant]
     Indication: HEART RATE IRREGULAR

REACTIONS (10)
  - ARTHRALGIA [None]
  - CELLULITIS [None]
  - CROHN'S DISEASE [None]
  - DENTAL CARIES [None]
  - DENTAL DISCOMFORT [None]
  - DIARRHOEA [None]
  - JOINT RANGE OF MOTION DECREASED [None]
  - LEUKOPLAKIA ORAL [None]
  - MEDICATION RESIDUE [None]
  - TOOTH INFECTION [None]
